FAERS Safety Report 11513843 (Version 1)
Quarter: 2015Q3

REPORT INFORMATION
  Report Type: Spontaneous
  Country: FR (occurrence: FR)
  Receive Date: 20150916
  Receipt Date: 20150916
  Transmission Date: 20151125
  Serious: Yes (Hospitalization)
  Sender: FDA-Public Use
  Company Number: FR-ASTRAZENECA-2015SE88775

PATIENT
  Age: 71 Year
  Sex: Female

DRUGS (13)
  1. ALLOPURINOL. [Concomitant]
     Active Substance: ALLOPURINOL
  2. ADANCOR [Concomitant]
     Active Substance: NICORANDIL
  3. ATACAND [Suspect]
     Active Substance: CANDESARTAN CILEXETIL
     Indication: HYPERTENSION
     Route: 048
  4. SPIRONOLACTONE. [Concomitant]
     Active Substance: SPIRONOLACTONE
  5. LASILIX [Suspect]
     Active Substance: FUROSEMIDE
     Indication: HYPERTENSION
     Route: 048
  6. PREVISCAN [Concomitant]
     Active Substance: FLUINDIONE
     Dosage: ONE DF AT MORNING OR 1.25 DF AT MORNING EACH OTHER DAY
  7. PREVISCAN [Concomitant]
     Active Substance: FLUINDIONE
     Dosage: 1 DF AT MORNING 0.25 DF AT NIGHT OR 1 DF AT MORNING AND 0.5 DF AT NIGHT EACH OTHER DAY
  8. DIFFU K [Concomitant]
     Active Substance: POTASSIUM CHLORIDE
  9. GLUCOPHAGE [Concomitant]
     Active Substance: METFORMIN HYDROCHLORIDE
  10. EFFERALGAN CODEINE [Concomitant]
     Active Substance: ACETAMINOPHEN\CODEINE PHOSPHATE
  11. OFLOCET [Suspect]
     Active Substance: OFLOXACIN
     Indication: COUGH
     Route: 048
     Dates: start: 20130405
  12. SECTRAL [Concomitant]
     Active Substance: ACEBUTOLOL HYDROCHLORIDE
  13. AMLOR [Concomitant]
     Active Substance: AMLODIPINE BESYLATE

REACTIONS (5)
  - Hyperkalaemia [Recovered/Resolved]
  - Vomiting [Unknown]
  - Acute kidney injury [Recovered/Resolved]
  - Nausea [Unknown]
  - Dehydration [Unknown]

NARRATIVE: CASE EVENT DATE: 20150409
